FAERS Safety Report 7755450-2 (Version None)
Quarter: 2011Q3

REPORT INFORMATION
  Report Type: 
  Country: None (occurrence: None)
  Receive Date: 20110825
  Receipt Date: 20110725
  Transmission Date: 20111222
  Serious: No
  Sender: FDA-Public Use
  Company Number: 332739

PATIENT
  Age: 57 Year
  Sex: Female

DRUGS (1)
  1. VICTOZA [Suspect]
     Indication: THYROIDITIS
     Dosage: SUBCUTANEOUS
     Route: 058

REACTIONS (1)
  - DYSGEUSIA [None]
